FAERS Safety Report 9860722 (Version 1)
Quarter: 2014Q1

REPORT INFORMATION
  Report Type: Spontaneous
  Country: None (occurrence: US)
  Receive Date: 20140202
  Receipt Date: 20140202
  Transmission Date: 20141002
  Serious: No
  Sender: FDA-Public Use
  Company Number: US-ALLERGAN-1300734US

PATIENT
  Sex: Female

DRUGS (2)
  1. BOTOX [Suspect]
     Indication: BLEPHAROSPASM
     Dosage: UNK, SINGLE
     Route: 030
     Dates: start: 20121120, end: 20121120
  2. REFRESH OPTIVE ADVANCED [Concomitant]
     Indication: DRY EYE
     Route: 047

REACTIONS (3)
  - Dry eye [Recovering/Resolving]
  - Headache [Unknown]
  - Therapeutic response decreased [Unknown]
